FAERS Safety Report 24444622 (Version 2)
Quarter: 2024Q4

REPORT INFORMATION
  Report Type: Report from Study
  Country: US (occurrence: US)
  Receive Date: 20241016
  Receipt Date: 20241115
  Transmission Date: 20250115
  Serious: Yes (Other)
  Sender: ALEXION PHARMACEUTICALS
  Company Number: US-AstraZeneca-CH-00712671A

PATIENT

DRUGS (4)
  1. FASENRA [Suspect]
     Active Substance: BENRALIZUMAB
  2. FASENRA [Suspect]
     Active Substance: BENRALIZUMAB
  3. FASENRA [Suspect]
     Active Substance: BENRALIZUMAB
  4. FASENRA [Suspect]
     Active Substance: BENRALIZUMAB

REACTIONS (9)
  - Pneumonia [Unknown]
  - Choking [Unknown]
  - Lung disorder [Unknown]
  - Nasopharyngitis [Unknown]
  - Secretion discharge [Unknown]
  - Speech disorder [Unknown]
  - Neck mass [Unknown]
  - Tonsillitis [Unknown]
  - Sensitivity to weather change [Unknown]
